FAERS Safety Report 4316438-7 (Version None)
Quarter: 2004Q1

REPORT INFORMATION
  Report Type: 
  Country: None (occurrence: None)
  Receive Date: 20040312
  Receipt Date: 20040302
  Transmission Date: 20041129
  Serious: Yes (Other)
  Sender: FDA-Public Use
  Company Number: US-BRISTOL-MYERS SQUIBB COMPANY-12522462

PATIENT
  Age: 43 Year
  Sex: Female

DRUGS (3)
  1. KENALOG [Suspect]
     Indication: ARTHRALGIA
     Dates: start: 20040225
  2. KENALOG [Suspect]
     Indication: ARTHRITIS
     Dates: start: 20040225
  3. LIDOCAINE [Suspect]

REACTIONS (1)
  - ANAPHYLACTIC SHOCK [None]
